FAERS Safety Report 9644746 (Version 3)
Quarter: 2013Q4

REPORT INFORMATION
  Report Type: Spontaneous
  Country: US (occurrence: US)
  Receive Date: 20131025
  Receipt Date: 20131204
  Transmission Date: 20140711
  Serious: Yes (Hospitalization, Other)
  Sender: FDA-Public Use
  Company Number: US-PFIZER INC-2013301442

PATIENT
  Age: 84 Year
  Sex: Male
  Weight: 72.44 kg

DRUGS (20)
  1. VFEND [Suspect]
     Indication: SINUSITIS FUNGAL
     Dosage: 200 MG, 2X/DAY
     Route: 048
     Dates: start: 20130409
  2. VFEND [Suspect]
     Dosage: 200 MG, 2X/DAY
     Route: 048
     Dates: start: 20130925
  3. ULORIC [Suspect]
     Dosage: 40 MG, 1X/DAY
     Dates: end: 2013
  4. VANCOMYCIN [Concomitant]
     Indication: LEUKAEMIA
     Dosage: UNK
  5. ZOVIRAX [Concomitant]
     Dosage: 400 MG, 2X/DAY
     Route: 048
  6. VITAMIN B-12 [Concomitant]
     Dosage: 1000 UG/ML, MONTHLY (EVERY 30 DAYS)
     Dates: end: 20130612
  7. COLACE [Concomitant]
     Dosage: 100 MG, 2X/DAY
     Route: 048
  8. LEVAQUIN [Concomitant]
     Dosage: 750 MG, DAILY
     Route: 048
  9. SENOKOT [Concomitant]
     Dosage: 8.6 MG, (DAILY ,AS NEEDED)
     Route: 048
  10. SODIUM CHLORIDE [Concomitant]
     Dosage: 1 DF, 1X/DAY (0.65%, 1 SPRAY BY NASAL ROUTE EVERY MORNING)
     Route: 045
  11. ULTRAM [Concomitant]
     Indication: PAIN
     Dosage: 100 MG, (50 MG, TAKE 2 TABLETS (100 MG) EVERY 8 HOURS, AS NEEDED FOR PAIN)
     Route: 048
  12. AMOXIL [Concomitant]
     Indication: PROPHYLAXIS
     Dosage: 2000 MG, (500 MG, TAKE 4 TABLET ONE HOUR PRIOR TO DENTAL PROCEDURE FOR CEBTRAL CATHETHER PROHYLAXIS)
     Route: 048
  13. ASPIRIN [Concomitant]
     Dosage: 81 MG, DAILY
     Route: 048
  14. CYTOXAN [Concomitant]
     Dosage: 150 MG/M2, 1X/DAY (ONCE, TREATMENT PALN ACTUAL)
     Route: 042
  15. VEPESID [Concomitant]
     Dosage: 150 MG/M2, DAILY (ONCE)
     Route: 042
  16. SODIUM CHLORIDE [Concomitant]
     Dosage: 250 ML, 1X/DAY (ONCE)
     Route: 042
  17. SODIUM CHLORIDE [Concomitant]
     Dosage: 50 ML, (ONCE, PRN)
  18. ZOFRAN [Concomitant]
     Dosage: 16 MG, 1X/DAY (ONCE)
     Route: 042
  19. MAGNESIUM SULFATE [Concomitant]
     Dosage: UNK, 1X/DAY (ONCE)
     Route: 042
  20. ERYTHROMYCIN [Concomitant]
     Dosage: 3.5 G, AS NEEDED
     Route: 047

REACTIONS (7)
  - Liver injury [Recovering/Resolving]
  - Hepatic enzyme increased [Recovering/Resolving]
  - Jaundice [Recovering/Resolving]
  - Pyrexia [Recovered/Resolved]
  - Fungal infection [Unknown]
  - Pancytopenia [Unknown]
  - Neutropenia [Unknown]
